FAERS Safety Report 5940465-7 (Version None)
Quarter: 2008Q4

REPORT INFORMATION
  Report Type: 
  Country: None (occurrence: None)
  Receive Date: 20081104
  Receipt Date: 20081027
  Transmission Date: 20090506
  Serious: Yes (Hospitalization)
  Sender: FDA-Public Use
  Company Number: US-AVENTIS-200816997US

PATIENT
  Sex: Male

DRUGS (1)
  1. CARAC [Suspect]
     Indication: ACTINIC KERATOSIS
     Dosage: DOSE: APPLIED TO DORSAL HANDS AND FOREARMS
     Route: 061
     Dates: start: 20080923, end: 20080930

REACTIONS (6)
  - ALOPECIA [None]
  - ANAEMIA [None]
  - HAIR DISORDER [None]
  - NAUSEA [None]
  - OFF LABEL USE [None]
  - PERICARDIAL EFFUSION [None]
